FAERS Safety Report 7362041-4 (Version None)
Quarter: 2011Q1

REPORT INFORMATION
  Report Type: 
  Country: None (occurrence: None)
  Receive Date: 20110318
  Receipt Date: 20110308
  Transmission Date: 20110831
  Serious: Yes (Hospitalization)
  Sender: FDA-Public Use
  Company Number: US-JNJFOC-20090102562

PATIENT
  Sex: Male
  Weight: 27.9 kg

DRUGS (3)
  1. REMICADE [Suspect]
     Route: 042
  2. REMICADE [Suspect]
     Indication: CROHN'S DISEASE
     Dosage: TOTAL 4 DOSES
     Route: 042
  3. REMICADE [Suspect]
     Route: 042

REACTIONS (3)
  - VOMITING [None]
  - DIARRHOEA [None]
  - FAECES DISCOLOURED [None]
